FAERS Safety Report 25851713 (Version 1)
Quarter: 2025Q3

REPORT INFORMATION
  Report Type: Report from Study
  Country: US (occurrence: US)
  Receive Date: 20250926
  Receipt Date: 20250926
  Transmission Date: 20251020
  Serious: Yes (Hospitalization, Other)
  Sender: BOEHRINGER INGELHEIM
  Company Number: US-BoehringerIngelheim-2025-BI-097802

PATIENT
  Age: 70 Year
  Sex: Female

DRUGS (1)
  1. OFEV [Suspect]
     Active Substance: NINTEDANIB
     Indication: Product used for unknown indication
     Dosage: WITH FOOD
     Dates: start: 20241227

REACTIONS (3)
  - Graft haemorrhage [Not Recovered/Not Resolved]
  - Face injury [Unknown]
  - Accident [Unknown]

NARRATIVE: CASE EVENT DATE: 20250827
